FAERS Safety Report 14230367 (Version 4)
Quarter: 2017Q4

REPORT INFORMATION
  Report Type: Spontaneous
  Country: US (occurrence: US)
  Receive Date: 20171128
  Receipt Date: 20171213
  Transmission Date: 20180321
  Serious: Yes (Other)
  Sender: FDA-Public Use
  Company Number: US-TEVA-2017-US-827054

PATIENT
  Sex: Female

DRUGS (1)
  1. BUDESINH [Suspect]
     Active Substance: BUDESONIDE
     Indication: DYSPNOEA
     Dosage: DOSE STRENGTH: 0.5 MG/2 ML
     Route: 065
     Dates: start: 2016

REACTIONS (4)
  - Hypoaesthesia [Unknown]
  - Visual impairment [Unknown]
  - Dyspnoea [Unknown]
  - Paraesthesia [Unknown]

NARRATIVE: CASE EVENT DATE: 20171025
